FAERS Safety Report 7300964-2 (Version None)
Quarter: 2011Q1

REPORT INFORMATION
  Report Type: 
  Country: None (occurrence: None)
  Receive Date: 20110218
  Receipt Date: 20101220
  Transmission Date: 20110831
  Serious: Yes (Hospitalization, Other)
  Sender: FDA-Public Use
  Company Number: US-RANBAXY-2010RR-40976

PATIENT
  Sex: Male

DRUGS (3)
  1. LEVAQUIN [Suspect]
     Indication: STAPHYLOCOCCAL INFECTION
     Dosage: 500 MG, UNK
     Route: 048
     Dates: start: 20080201, end: 20080301
  2. CIPROFLOXACIN [Suspect]
     Indication: PROPHYLAXIS
     Dosage: UNK
     Dates: start: 20080101
  3. PREDNISOLONE [Suspect]
     Indication: INFLAMMATION
     Dosage: 40 MG, UNK
     Route: 048
     Dates: start: 20080101

REACTIONS (6)
  - LIGAMENT RUPTURE [None]
  - TENDONITIS [None]
  - MENISCUS LESION [None]
  - ROTATOR CUFF SYNDROME [None]
  - TENDON RUPTURE [None]
  - JOINT INJURY [None]
